FAERS Safety Report 7166654-4 (Version None)
Quarter: 2010Q4

REPORT INFORMATION
  Report Type: 
  Country: None (occurrence: None)
  Receive Date: 20101216
  Receipt Date: 20101213
  Transmission Date: 20110411
  Serious: Yes (Hospitalization)
  Sender: FDA-Public Use
  Company Number: NZ-CEPHALON-2010006401

PATIENT
  Sex: Male
  Weight: 98 kg

DRUGS (12)
  1. TREANDA [Suspect]
     Indication: SPLENIC MARGINAL ZONE LYMPHOMA
     Route: 042
     Dates: start: 20100916, end: 20101126
  2. RITUXIMAB [Suspect]
     Indication: SPLENIC MARGINAL ZONE LYMPHOMA
     Route: 042
     Dates: start: 20100916, end: 20101125
  3. ASPIRIN [Concomitant]
  4. CILAZAPRIL [Concomitant]
     Dates: start: 20090101
  5. OMEPRAZOLE [Concomitant]
     Dates: start: 20040101
  6. METFORMIN HCL [Concomitant]
     Dates: start: 19990101
  7. BUDESONIDE AND EFORMOTEROL FUMERATE DIHYDRATE [Concomitant]
  8. TESTOSTERONE [Concomitant]
  9. FERROGRADUMENT [Concomitant]
  10. VENTOLIN DS [Concomitant]
  11. ALLOPURINIL [Concomitant]
  12. G-CSF [Concomitant]
     Dates: start: 20101207, end: 20101215

REACTIONS (1)
  - CHRONIC OBSTRUCTIVE PULMONARY DISEASE [None]
